FAERS Safety Report 24879596 (Version 1)
Quarter: 2025Q1

REPORT INFORMATION
  Report Type: Spontaneous
  Country: US (occurrence: US)
  Receive Date: 20250123
  Receipt Date: 20250123
  Transmission Date: 20250408
  Serious: Yes (Hospitalization)
  Sender: ELI LILLY AND COMPANY
  Company Number: US-ELI_LILLY_AND_COMPANY-US202501012557

PATIENT
  Age: 40 Year

DRUGS (4)
  1. TRULICITY [Suspect]
     Active Substance: DULAGLUTIDE
     Indication: Type 2 diabetes mellitus
     Route: 065
     Dates: start: 201805, end: 201903
  2. TRULICITY [Suspect]
     Active Substance: DULAGLUTIDE
     Indication: Disease risk factor
  3. OZEMPIC [Suspect]
     Active Substance: SEMAGLUTIDE
     Indication: Type 2 diabetes mellitus
     Route: 065
     Dates: start: 201903, end: 202312
  4. OZEMPIC [Suspect]
     Active Substance: SEMAGLUTIDE
     Indication: Disease risk factor

REACTIONS (6)
  - Gallbladder disorder [Unknown]
  - Impaired gastric emptying [Unknown]
  - Nausea [Unknown]
  - Vomiting [Unknown]
  - Abdominal pain [Unknown]
  - Diarrhoea [Unknown]
